FAERS Safety Report 9096082 (Version 1)
Quarter: 2013Q1

REPORT INFORMATION
  Report Type: Spontaneous
  Country: FR (occurrence: FR)
  Receive Date: 20130207
  Receipt Date: 20130207
  Transmission Date: 20140127
  Serious: Yes (Hospitalization, Disabling, Other)
  Sender: FDA-Public Use
  Company Number: FR-ASTRAZENECA-2013SE07118

PATIENT
  Age: 66 Year
  Sex: Female

DRUGS (5)
  1. XEROQUEL [Suspect]
     Indication: PSYCHOTIC DISORDER
     Dosage: DOSE PROGRESSIVELY INCREASED TO 300 MG PER DAY
     Route: 048
  2. LEPTICUR [Concomitant]
     Dates: start: 2010
  3. DEPAKOTE [Concomitant]
     Dates: start: 2010
  4. VALIUM [Concomitant]
  5. IMOVANE [Concomitant]

REACTIONS (4)
  - Cerebellar ataxia [Recovered/Resolved]
  - Fall [Unknown]
  - Cerebral haemorrhage [Unknown]
  - Dizziness [Unknown]
